FAERS Safety Report 6456161-6 (Version None)
Quarter: 2009Q4

REPORT INFORMATION
  Report Type: 
  Country: None (occurrence: None)
  Receive Date: 20091125
  Receipt Date: 20091118
  Transmission Date: 20100525
  Serious: Yes (Other)
  Sender: FDA-Public Use
  Company Number: US-JNJFOC-20091105919

PATIENT
  Sex: Male
  Weight: 105.24 kg

DRUGS (4)
  1. REMICADE [Suspect]
     Dosage: ^5 VIALS^
     Route: 042
     Dates: start: 20090406, end: 20091019
  2. REMICADE [Suspect]
     Dosage: ^5 VIALS^
     Route: 042
     Dates: start: 20090406, end: 20091019
  3. REMICADE [Suspect]
     Dosage: ^5 VIALS^
     Route: 042
     Dates: start: 20090406, end: 20091019
  4. REMICADE [Suspect]
     Indication: RHEUMATOID ARTHRITIS
     Dosage: ^5 VIALS^
     Route: 042
     Dates: start: 20090406, end: 20091019

REACTIONS (1)
  - SKIN CANCER [None]
